FAERS Safety Report 4655807-2 (Version None)
Quarter: 2005Q2

REPORT INFORMATION
  Report Type: 
  Country: None (occurrence: None)
  Receive Date: 20050509
  Receipt Date: 20050425
  Transmission Date: 20051028
  Serious: Yes (Hospitalization, Other)
  Sender: FDA-Public Use
  Company Number: US-SP-2005-00792

PATIENT
  Age: 42 Year
  Sex: Female

DRUGS (2)
  1. TUBERSOL [Suspect]
     Indication: TUBERCULIN TEST
     Route: 023
     Dates: start: 20050419
  2. TUBERSOL [Suspect]
     Route: 023
     Dates: start: 20050419

REACTIONS (7)
  - HYPERSENSITIVITY [None]
  - INJECTION SITE PRURITUS [None]
  - INJECTION SITE RASH [None]
  - INJECTION SITE REACTION [None]
  - PRURITUS [None]
  - SWELLING FACE [None]
  - URTICARIA [None]
